FAERS Safety Report 9461906 (Version 2)
Quarter: 2013Q3

REPORT INFORMATION
  Report Type: Spontaneous
  Country: US (occurrence: US)
  Receive Date: 20130816
  Receipt Date: 20130821
  Transmission Date: 20140515
  Serious: No
  Sender: FDA-Public Use
  Company Number: US-009507513-1308USA001416

PATIENT
  Age: 73 Year
  Sex: Male

DRUGS (1)
  1. NASONEX [Suspect]
     Indication: RHINITIS ALLERGIC
     Dosage: 2 SPRAY IN EACH NOSTRIL, QD, STRENGTH- 50 UNITS UNSPCIFIED
     Route: 045
     Dates: start: 20061106

REACTIONS (2)
  - Sneezing [Recovering/Resolving]
  - Product odour abnormal [Unknown]
